FAERS Safety Report 5499683-7 (Version None)
Quarter: 2007Q4

REPORT INFORMATION
  Report Type: 
  Country: None (occurrence: None)
  Receive Date: 20071026
  Receipt Date: 20071015
  Transmission Date: 20080405
  Serious: Yes (Life-Threatening, Hospitalization, Disabling, Other)
  Sender: FDA-Public Use
  Company Number: BR-PFIZER INC-2007019071

PATIENT
  Sex: Female

DRUGS (8)
  1. DIABINESE [Suspect]
     Indication: DIABETES MELLITUS
     Route: 048
     Dates: start: 19960101, end: 20041130
  2. NORVASC [Suspect]
     Route: 048
     Dates: start: 20040101, end: 20060101
  3. CADUET [Suspect]
     Indication: HYPERTENSION
     Dosage: TEXT:10MG/5MG;20MG/10MG
     Route: 048
  4. ALDACTONE [Suspect]
     Indication: HYPERTENSION
     Route: 048
  5. OLMETEC [Suspect]
     Indication: HYPERTENSION
     Route: 048
  6. CORISTINA D [Suspect]
     Indication: INFLUENZA
     Route: 048
  7. INSULIN [Suspect]
     Indication: DIABETES MELLITUS
     Route: 058
     Dates: start: 20041101
  8. NOVONORM [Suspect]

REACTIONS (10)
  - ARTERIAL OCCLUSIVE DISEASE [None]
  - BLOOD GLUCOSE INCREASED [None]
  - COAGULOPATHY [None]
  - DEPRESSION [None]
  - DYSPNOEA [None]
  - INJECTION SITE HAEMATOMA [None]
  - MYOCARDIAL INFARCTION [None]
  - OEDEMA [None]
  - PULMONARY OEDEMA [None]
  - SYNCOPE [None]
